FAERS Safety Report 8088162 (Version 2)
Quarter: 2012Q4

REPORT INFORMATION
  Report Type: 
  Country: US (occurrence: US)
  Receive Date: 20110812
  Receipt Date: 20121004
  Transmission Date: 20130627
  Serious: Yes (Other)
  Sender: FDA-Public Use
  Company Number: US-ROCHE-794627

PATIENT
  Sex: Male
  Weight: 88.53 kg

DRUGS (1)
  1. ACCUTANE [Suspect]
     Indication: ACNE
     Route: 065
     Dates: start: 199411, end: 199503

REACTIONS (9)
  - Crohn^s disease [Unknown]
  - Depression [Unknown]
  - Irritable bowel syndrome [Unknown]
  - Pancreatitis [Unknown]
  - Renal injury [Unknown]
  - Suicidal ideation [Unknown]
  - Gastritis [Unknown]
  - Inflammatory bowel disease [Unknown]
  - Suicide attempt [Unknown]
